FAERS Safety Report 8515660-3 (Version None)
Quarter: 2012Q3

REPORT INFORMATION
  Report Type: 
  Country: None (occurrence: None)
  Receive Date: 20120717
  Receipt Date: 20120711
  Transmission Date: 20120928
  Serious: Yes (Other)
  Sender: FDA-Public Use
  Company Number: PHHY2012BR060567

PATIENT
  Age: 65 Year
  Sex: Female

DRUGS (2)
  1. FORMOTEROL FUMARATE [Suspect]
     Indication: BRONCHITIS
     Dosage: 1 DF, BID
  2. FORMOTEROL FUMARATE [Suspect]
     Indication: EMPHYSEMA

REACTIONS (3)
  - VISUAL IMPAIRMENT [None]
  - INFLUENZA [None]
  - VISUAL FIELD DEFECT [None]
